FAERS Safety Report 20641120 (Version 2)
Quarter: 2022Q2

REPORT INFORMATION
  Report Type: Spontaneous
  Country: US (occurrence: US)
  Receive Date: 20220327
  Receipt Date: 20220425
  Transmission Date: 20220721
  Serious: Yes (Other)
  Sender: FDA-Public Use
  Company Number: US-Blueprint Medicines Corporation-SP-US-2022-000736

PATIENT
  Sex: Female
  Weight: 46.3 kg

DRUGS (7)
  1. AYVAKIT [Suspect]
     Active Substance: AVAPRITINIB
     Indication: Systemic mastocytosis
     Route: 048
     Dates: start: 20210902
  2. AYVAKIT [Suspect]
     Active Substance: AVAPRITINIB
     Route: 048
     Dates: start: 20210903, end: 20211025
  3. AYVAKIT [Suspect]
     Active Substance: AVAPRITINIB
     Route: 048
     Dates: start: 20211118
  4. IVERMECTIN [Concomitant]
     Active Substance: IVERMECTIN
     Indication: Acarodermatitis
     Route: 048
     Dates: start: 20211118, end: 20211216
  5. IVERMECTIN [Concomitant]
     Active Substance: IVERMECTIN
     Route: 048
     Dates: start: 20220223, end: 20220323
  6. PERMETHRIN [Concomitant]
     Active Substance: PERMETHRIN
     Indication: Acarodermatitis
     Route: 061
     Dates: start: 20211118, end: 20211209
  7. PERMETHRIN [Concomitant]
     Active Substance: PERMETHRIN
     Route: 061
     Dates: start: 20220223, end: 20220316

REACTIONS (1)
  - Acarodermatitis [Recovering/Resolving]
